APPROVED DRUG PRODUCT: PIPERACILLIN AND TAZOBACTAM
Active Ingredient: PIPERACILLIN SODIUM; TAZOBACTAM SODIUM
Strength: EQ 3GM BASE/VIAL;EQ 375MG BASE/VIAL
Dosage Form/Route: INJECTABLE;INJECTION
Application: A207847 | Product #002 | TE Code: AP
Applicant: MILLA PHARMACEUTICALS INC
Approved: Jan 13, 2017 | RLD: No | RS: No | Type: RX